FAERS Safety Report 6897209-4 (Version None)
Quarter: 2010Q3

REPORT INFORMATION
  Report Type: 
  Country: None (occurrence: None)
  Receive Date: 20100802
  Receipt Date: 20070424
  Transmission Date: 20110219
  Serious: Yes (Other)
  Sender: FDA-Public Use
  Company Number: US-PFIZER INC-2007015500

PATIENT
  Sex: Female
  Weight: 65.8 kg

DRUGS (4)
  1. LYRICA [Suspect]
     Indication: BACK DISORDER
     Dates: start: 20070223, end: 20070224
  2. LYRICA [Suspect]
     Indication: LIMB DISCOMFORT
  3. MEDROL [Concomitant]
  4. PERCOCET [Concomitant]

REACTIONS (2)
  - DIZZINESS [None]
  - LOSS OF CONSCIOUSNESS [None]
